FAERS Safety Report 12433334 (Version 1)
Quarter: 2016Q2

REPORT INFORMATION
  Report Type: Spontaneous
  Country: US (occurrence: US)
  Receive Date: 20160603
  Receipt Date: 20160603
  Transmission Date: 20160815
  Serious: No
  Sender: FDA-Public Use
  Company Number: US-MALLINCKRODT-T201600515

PATIENT
  Age: 61 Year
  Sex: Female
  Weight: 73 kg

DRUGS (27)
  1. DUONEB [Concomitant]
     Active Substance: ALBUTEROL SULFATE\IPRATROPIUM BROMIDE
  2. ZESTRIL [Concomitant]
     Active Substance: LISINOPRIL
  3. PREDNISONE. [Concomitant]
     Active Substance: PREDNISONE
     Dosage: ^DOSE PAK^
     Dates: end: 201602
  4. QNASL [Concomitant]
     Active Substance: BECLOMETHASONE DIPROPIONATE
     Dosage: SPRAY
     Route: 045
  5. TYLENOL [Concomitant]
     Active Substance: ACETAMINOPHEN
     Dosage: 500 MG
  6. MAXALT [Concomitant]
     Active Substance: RIZATRIPTAN BENZOATE
  7. CARAFATE [Concomitant]
     Active Substance: SUCRALFATE
  8. VITAMIN D [Concomitant]
     Active Substance: CHOLECALCIFEROL
  9. PROAIR HFA [Concomitant]
     Active Substance: ALBUTEROL SULFATE
  10. CEFTIN [Concomitant]
     Active Substance: CEFUROXIME AXETIL
  11. XALATAN [Concomitant]
     Active Substance: LATANOPROST
  12. ACETAMINOPHEN AND CODEINE [Suspect]
     Active Substance: ACETAMINOPHEN\CODEINE PHOSPHATE
     Indication: FIBROMYALGIA
     Dosage: 300MG/30MG, ONE EVERY 8 HRS PRN (MAX OF 2 PER DAY)
     Route: 048
     Dates: start: 2000, end: 20160211
  13. ACETAMINOPHEN AND CODEINE [Suspect]
     Active Substance: ACETAMINOPHEN\CODEINE PHOSPHATE
     Indication: INTERVERTEBRAL DISC DEGENERATION
  14. ATENOLOL. [Concomitant]
     Active Substance: ATENOLOL
  15. HYDROCHLOROTHIAZIDE. [Concomitant]
     Active Substance: HYDROCHLOROTHIAZIDE
  16. SALINE [Concomitant]
     Active Substance: SODIUM CHLORIDE
     Dosage: SPRAY PRN
     Route: 045
  17. COLACE [Concomitant]
     Active Substance: DOCUSATE SODIUM
     Dosage: PRN
  18. ZANTAC [Concomitant]
     Active Substance: RANITIDINE HYDROCHLORIDE
  19. ASPIRIN 81 [Concomitant]
     Active Substance: ASPIRIN
     Dosage: 81 MG
  20. ALLEGRA [Concomitant]
     Active Substance: FEXOFENADINE HYDROCHLORIDE
  21. FLECAINIDE [Concomitant]
     Active Substance: FLECAINIDE
  22. ACETAMINOPHEN AND CODEINE [Suspect]
     Active Substance: ACETAMINOPHEN\CODEINE PHOSPHATE
     Indication: MIGRAINE
  23. CRESTOR [Concomitant]
     Active Substance: ROSUVASTATIN CALCIUM
  24. ZETIA [Concomitant]
     Active Substance: EZETIMIBE
  25. KLONOPIN [Concomitant]
     Active Substance: CLONAZEPAM
  26. LIDOCAINE. [Concomitant]
     Active Substance: LIDOCAINE
     Dosage: PATCHES
  27. DEXILANT [Concomitant]
     Active Substance: DEXLANSOPRAZOLE

REACTIONS (4)
  - Drug screen positive [Unknown]
  - Intentional product misuse [Not Recovered/Not Resolved]
  - Bronchitis [Not Recovered/Not Resolved]
  - Somnolence [Not Recovered/Not Resolved]

NARRATIVE: CASE EVENT DATE: 2010
